FAERS Safety Report 8523045-9 (Version None)
Quarter: 2012Q3

REPORT INFORMATION
  Report Type: 
  Country: None (occurrence: None)
  Receive Date: 20120720
  Receipt Date: 20120717
  Transmission Date: 20120928
  Serious: Yes (Death)
  Sender: FDA-Public Use
  Company Number: US-ROCHE-1041972

PATIENT
  Sex: Female
  Weight: 58.112 kg

DRUGS (14)
  1. ATENOLOL [Concomitant]
  2. DECADRON [Concomitant]
     Indication: INFLAMMATION
     Route: 042
     Dates: start: 20111227
  3. XELODA [Suspect]
     Indication: COLORECTAL CANCER METASTATIC
     Route: 048
     Dates: start: 20111227
  4. RISPERDAL [Concomitant]
  5. D5W .2NS [Concomitant]
     Route: 042
     Dates: start: 20111227
  6. OXALIPLATIN [Suspect]
     Indication: RECTOSIGMOID CANCER
     Route: 042
     Dates: start: 20111227
  7. SPIRIVA [Concomitant]
  8. PROMETHAZINE [Concomitant]
     Route: 048
  9. AVASTIN [Suspect]
     Indication: RECTOSIGMOID CANCER
     Route: 042
     Dates: start: 20111227
  10. COMBIVENT [Concomitant]
  11. PAXIL [Concomitant]
  12. SODIUM CHLORIDE [Concomitant]
     Route: 042
     Dates: start: 20111227
  13. ALOXI [Concomitant]
     Indication: NAUSEA
     Route: 042
     Dates: start: 20111227
  14. ASPIRIN [Concomitant]
     Route: 048

REACTIONS (12)
  - DRY SKIN [None]
  - CONFUSIONAL STATE [None]
  - HALLUCINATION [None]
  - SLEEP TALKING [None]
  - SOLILOQUY [None]
  - DIARRHOEA [None]
  - BLOOD PRESSURE INCREASED [None]
  - DEATH [None]
  - PAIN [None]
  - NAUSEA [None]
  - CONSTIPATION [None]
  - PROTEIN TOTAL DECREASED [None]
